FAERS Safety Report 9104961 (Version 3)
Quarter: 2013Q3

REPORT INFORMATION
  Report Type: Report from Study
  Country: DE (occurrence: DE)
  Receive Date: 20130220
  Receipt Date: 20130729
  Transmission Date: 20140515
  Serious: Yes (Hospitalization)
  Sender: FDA-Public Use
  Company Number: DE-JNJFOC-20130207746

PATIENT
  Age: 72 Year
  Sex: Female
  Weight: 75 kg

DRUGS (6)
  1. TAPENTADOL (P.R. TABLET) [Suspect]
     Indication: BACK PAIN
     Route: 065
     Dates: start: 20120813, end: 20120815
  2. MICARDIS PLUS [Concomitant]
     Dosage: 12.5/80, 1X/D
     Route: 065
  3. SIMVASTATIN [Concomitant]
     Route: 065
  4. ASS [Concomitant]
     Route: 065
  5. TILIDIN [Concomitant]
     Indication: BACK PAIN
     Route: 065
  6. GABAPENTIN [Concomitant]
     Route: 065

REACTIONS (1)
  - Hypertensive crisis [Recovered/Resolved]
